FAERS Safety Report 5404576-7 (Version None)
Quarter: 2007Q3

REPORT INFORMATION
  Report Type: 
  Country: None (occurrence: None)
  Receive Date: 20070713
  Receipt Date: 20061227
  Transmission Date: 20080115
  Serious: Yes (Hospitalization, Other)
  Sender: FDA-Public Use
  Company Number: US-JNJFOC-20040200450

PATIENT
  Age: 26 Year
  Sex: Female
  Weight: 68.4932 kg

DRUGS (5)
  1. ORTHO EVRA [Suspect]
     Indication: CONTRACEPTION
     Dosage: 1 DOSE(S), 3 IN 4 WEEK, TRANSDERMAL
     Route: 062
     Dates: start: 20031017, end: 20040101
  2. LOVENOX [Suspect]
     Indication: DRUG USE FOR UNKNOWN INDICATION
     Dates: start: 20031201, end: 20031201
  3. FIBERCON (POLYCARBOPHIL CALCIUM) [Concomitant]
  4. MULTI-VITAMINS [Concomitant]
  5. ORTHO TRI-CYCLEN [Concomitant]

REACTIONS (1)
  - MYOCARDIAL INFARCTION [None]
